FAERS Safety Report 10575785 (Version 4)
Quarter: 2014Q4

REPORT INFORMATION
  Report Type: Spontaneous
  Country: JP (occurrence: JP)
  Receive Date: 20141111
  Receipt Date: 20141229
  Transmission Date: 20150529
  Serious: Yes (Death)
  Sender: FDA-Public Use
  Company Number: JP-MALLINCKRODT-T201403458

PATIENT
  Age: 64 Year
  Sex: Male
  Weight: 62 kg

DRUGS (22)
  1. METHADONE [Suspect]
     Active Substance: METHADONE HYDROCHLORIDE
     Dosage: 15 MG, (45 MG DAILY DOSE)
     Route: 048
     Dates: start: 20140829, end: 20140911
  2. PROMAC [Concomitant]
     Active Substance: NITROFURANTOIN
     Dosage: 150 MG, UNK
     Route: 048
     Dates: start: 20141005, end: 20141015
  3. METHADONE [Suspect]
     Active Substance: METHADONE HYDROCHLORIDE
     Dosage: 10 MG, (30 MG DAILY DOSE)
     Route: 048
     Dates: start: 20140822, end: 20140828
  4. GEMCITABINE [Concomitant]
     Active Substance: GEMCITABINE\GEMCITABINE HYDROCHLORIDE
     Dosage: 1600 MG, UNK
     Dates: start: 20140826, end: 20140826
  5. OXINORM [Concomitant]
     Active Substance: OXYCODONE HYDROCHLORIDE
     Dosage: 15 MG, PRN
     Route: 048
     Dates: start: 20140814
  6. NESINA [Concomitant]
     Active Substance: ALOGLIPTIN BENZOATE
     Dosage: 25 MG, UNK
     Route: 048
     Dates: end: 20141015
  7. DEXART [Concomitant]
     Active Substance: DEXAMETHASONE SODIUM PHOSPHATE
     Dosage: 8 MG, UNK
     Route: 051
     Dates: start: 20140815, end: 20140816
  8. DEXART [Concomitant]
     Active Substance: DEXAMETHASONE SODIUM PHOSPHATE
     Dosage: 8 UNK, UNK
     Route: 051
     Dates: start: 20140826, end: 20140826
  9. PURSENNID [Concomitant]
     Active Substance: SENNOSIDES A AND B
     Dosage: 24 MG, UNK
     Route: 048
     Dates: end: 20141015
  10. ETODOLAC. [Concomitant]
     Active Substance: ETODOLAC
     Dosage: 400 MG, UNK
     Route: 048
     Dates: end: 20141015
  11. BENZBROMARONE [Concomitant]
     Active Substance: BENZBROMARONE
     Dosage: 50 MG, UNK
     Route: 048
     Dates: end: 20141015
  12. GASCON [Concomitant]
     Active Substance: DIMETHICONE
     Dosage: 120 MG, UNK
     Route: 048
     Dates: end: 20141015
  13. PRIMPERAN [Concomitant]
     Active Substance: METOCLOPRAMIDE HYDROCHLORIDE
     Dosage: 5 MG, UNK
     Route: 048
     Dates: end: 20141015
  14. POSTERISAN                         /00521801/ [Concomitant]
     Dosage: 4 G, UNK
     Route: 054
     Dates: end: 20141015
  15. METHADONE [Suspect]
     Active Substance: METHADONE HYDROCHLORIDE
     Indication: CANCER PAIN
     Dosage: 5 MG, (15 MG DAILY DOSE)
     Route: 048
     Dates: start: 20140815, end: 20140821
  16. METHADONE [Suspect]
     Active Substance: METHADONE HYDROCHLORIDE
     Dosage: 20 MG, (60 MG DAILY DOSE)
     Route: 048
     Dates: start: 20140912, end: 20141010
  17. METGLUCO [Concomitant]
     Active Substance: METFORMIN HYDROCHLORIDE
     Dosage: 500 MG, UNK
     Route: 048
     Dates: end: 20141015
  18. PYDOXAL [Concomitant]
     Active Substance: PYRIDOXAL
     Dosage: 30 MG, UNK
     Route: 048
     Dates: start: 20140819, end: 20141015
  19. NEXIUM [Concomitant]
     Active Substance: ESOMEPRAZOLE MAGNESIUM
     Dosage: 20 MG, UNK
     Route: 048
     Dates: end: 20141015
  20. BETANAMIN [Concomitant]
     Dosage: 10 MG, UNK
     Route: 048
     Dates: start: 20140926, end: 20141015
  21. MAGMITT [Concomitant]
     Active Substance: MAGNESIUM OXIDE
     Dosage: 990 MG, UNK
     Route: 048
     Dates: end: 20141015
  22. FLAVITAN [Concomitant]
     Active Substance: FLAVIN ADENINE DINUCLEOTIDE
     Dosage: 30 MG, UNK
     Route: 048
     Dates: start: 20140819, end: 20141015

REACTIONS (7)
  - Hyponatraemia [Recovered/Resolved]
  - Malignant neoplasm of renal pelvis [Fatal]
  - Hypocalcaemia [Not Recovered/Not Resolved]
  - Stomatitis [Recovered/Resolved]
  - Nausea [Not Recovered/Not Resolved]
  - Fungal skin infection [Recovered/Resolved]
  - Somnolence [Recovered/Resolved]

NARRATIVE: CASE EVENT DATE: 20140818
